FAERS Safety Report 10408102 (Version 2)
Quarter: 2014Q3

REPORT INFORMATION
  Report Type: Spontaneous
  Country: US (occurrence: US)
  Receive Date: 20140825
  Receipt Date: 20140825
  Transmission Date: 20150326
  Serious: Yes (Hospitalization, Other)
  Sender: FDA-Public Use
  Company Number: US-009507513-2009-200921-NL

PATIENT
  Sex: Female
  Weight: 113.4 kg

DRUGS (1)
  1. NUVARING [Suspect]
     Active Substance: ETHINYL ESTRADIOL\ETONOGESTREL
     Indication: PRODUCT USED FOR UNKNOWN INDICATION
     Dosage: CONTINUING: NO
     Dates: start: 20070613, end: 20070701

REACTIONS (4)
  - Pulmonary embolism [Recovered/Resolved]
  - Oophorectomy [Unknown]
  - Hypokalaemia [Unknown]
  - Ovarian cyst ruptured [Unknown]

NARRATIVE: CASE EVENT DATE: 20070701
